FAERS Safety Report 9612297 (Version 1)
Quarter: 2013Q4

REPORT INFORMATION
  Report Type: Spontaneous
  Country: US (occurrence: US)
  Receive Date: 20131010
  Receipt Date: 20131010
  Transmission Date: 20140711
  Serious: No
  Sender: FDA-Public Use
  Company Number: US-ASTELLAS-2013US008679

PATIENT
  Age: 71 Year
  Sex: Female
  Weight: 77 kg

DRUGS (6)
  1. MYRBETRIQ [Suspect]
     Indication: PRODUCT USED FOR UNKNOWN INDICATION
     Dosage: 25 MG, UID/QD
     Route: 048
     Dates: start: 20130731
  2. DIOVAN HCT [Concomitant]
     Indication: HYPERTENSION
     Dosage: 1 DF, UID/QD
     Route: 048
  3. LEVOTHYROXIN SODIUM [Concomitant]
     Indication: THYROID DISORDER
     Dosage: 225 MG, UID/QD
     Route: 048
  4. CYMBALTA [Concomitant]
     Indication: POST-TRAUMATIC STRESS DISORDER
     Dosage: 1 DF, UID/QD
     Route: 048
  5. AGOMELATINE [Concomitant]
     Indication: INSOMNIA
     Dosage: 1 DF, UID/QD
     Route: 048
  6. ZETIA [Concomitant]
     Indication: BLOOD CHOLESTEROL INCREASED
     Dosage: 1 DF, UID/QD
     Route: 048

REACTIONS (1)
  - Drug ineffective [Unknown]
